FAERS Safety Report 5914008-8 (Version None)
Quarter: 2008Q4

REPORT INFORMATION
  Report Type: 
  Country: None (occurrence: None)
  Receive Date: 20081007
  Receipt Date: 20080922
  Transmission Date: 20090506
  Serious: Yes (Hospitalization)
  Sender: FDA-Public Use
  Company Number: PAR_02355_2008

PATIENT
  Age: 68 Year
  Sex: Male

DRUGS (7)
  1. IBUPROFEN [Suspect]
     Indication: MYALGIA INTERCOSTAL
     Dosage: 3600 MG ORAL
     Route: 048
     Dates: start: 20080728, end: 20080730
  2. ADIRO (ADIRO - ACETYLSALICYLIC ACID) 100 MG (NOT SPECIFIED) [Suspect]
     Indication: INTERMITTENT CLAUDICATION
     Dosage: 100 MG ORAL
     Route: 048
     Dates: end: 20080731
  3. ALENDRONIC ACID (ALENDRONIC ACID) [Suspect]
     Indication: BONE DISORDER
     Dosage: DF ORAL
     Route: 048
     Dates: end: 20080730
  4. CALCIUM SANDOZ FORTE D [Concomitant]
  5. CALCIUM [Concomitant]
  6. CALCIUM LACTATE [Concomitant]
  7. RABEPRAZOLE SODIUM [Concomitant]

REACTIONS (4)
  - EROSIVE DUODENITIS [None]
  - EROSIVE OESOPHAGITIS [None]
  - OESOPHAGITIS [None]
  - UPPER GASTROINTESTINAL HAEMORRHAGE [None]
